FAERS Safety Report 21713919 (Version 1)
Quarter: 2022Q4

REPORT INFORMATION
  Report Type: Spontaneous
  Country: US (occurrence: None)
  Receive Date: 20221208
  Receipt Date: 20221208
  Transmission Date: 20230113
  Serious: No
  Sender: FDA-Public Use
  Company Number: None

PATIENT
  Age: 40 Year
  Sex: Female
  Weight: 78 kg

DRUGS (1)
  1. ETHINYL ESTRADIOL\NORELGESTROMIN [Suspect]
     Active Substance: ETHINYL ESTRADIOL\NORELGESTROMIN
     Indication: Dysmenorrhoea
     Dosage: 1 PATCH QWEEK TOP?
     Route: 061
     Dates: start: 20220624, end: 20220923

REACTIONS (5)
  - Device adhesion issue [None]
  - Device ineffective [None]
  - Drug ineffective [None]
  - Endometriosis ablation [None]
  - Myomectomy [None]

NARRATIVE: CASE EVENT DATE: 20220923
